FAERS Safety Report 4489599-7 (Version None)
Quarter: 2004Q4

REPORT INFORMATION
  Report Type: 
  Country: None (occurrence: None)
  Receive Date: 20041101
  Receipt Date: 20041019
  Transmission Date: 20050328
  Serious: Yes (Hospitalization)
  Sender: FDA-Public Use
  Company Number: IL-BRISTOL-MYERS SQUIBB COMPANY-12735965

PATIENT
  Age: 58 Year
  Sex: Female
  Weight: 62 kg

DRUGS (4)
  1. TAXOL [Suspect]
     Indication: BLADDER CANCER
     Dosage: INITIATED 22-APR-04
     Dates: start: 20040429, end: 20040429
  2. CISPLATIN [Suspect]
     Indication: BLADDER CANCER
     Dates: start: 20040422, end: 20040422
  3. GEMCITABINE [Suspect]
     Indication: BLADDER CANCER
     Dosage: INITIATED 22-APR-2004
     Dates: start: 20040429, end: 20040429
  4. DEXAMETHASONE [Concomitant]
     Indication: PREMEDICATION
     Dates: start: 20040429, end: 20040430

REACTIONS (2)
  - FEBRILE NEUTROPENIA [None]
  - HYPONATRAEMIA [None]
